FAERS Safety Report 18039553 (Version 2)
Quarter: 2020Q3

REPORT INFORMATION
  Report Type: Report from Study
  Country: US (occurrence: US)
  Receive Date: 20200717
  Receipt Date: 20200723
  Transmission Date: 20201103
  Serious: Yes (Hospitalization, Other)
  Sender: FDA-Public Use
  Company Number: US-GILEAD-2020-0482919

PATIENT
  Age: 55 Year
  Sex: Female

DRUGS (2)
  1. AMBRISENTAN [Suspect]
     Active Substance: AMBRISENTAN
     Indication: PULMONARY ARTERIAL HYPERTENSION
     Dosage: 10 MG, QD
     Route: 065
     Dates: start: 20200403
  2. VELETRI [Concomitant]
     Active Substance: EPOPROSTENOL

REACTIONS (3)
  - Respiratory failure [Unknown]
  - Fluid retention [Unknown]
  - Dyspnoea [Unknown]
